FAERS Safety Report 5787950-9 (Version None)
Quarter: 2008Q2

REPORT INFORMATION
  Report Type: 
  Country: None (occurrence: None)
  Receive Date: 20080625
  Receipt Date: 20080620
  Transmission Date: 20081010
  Serious: Yes (Hospitalization, Disabling)
  Sender: FDA-Public Use
  Company Number: B0526335A

PATIENT
  Age: 51 Year
  Sex: Male

DRUGS (5)
  1. ZIAGEN [Suspect]
     Indication: HIV INFECTION
     Dosage: 600MG PER DAY
     Route: 048
     Dates: start: 20040101
  2. VIDEX [Suspect]
     Indication: HIV INFECTION
     Dosage: 250MG PER DAY
     Route: 048
     Dates: start: 19990101
  3. LIPLAT [Concomitant]
     Dosage: 40MG PER DAY
     Route: 048
     Dates: end: 20080206
  4. NEBIVOLOL HCL [Concomitant]
     Dosage: 5MG PER DAY
     Route: 048
     Dates: end: 20080206
  5. VIRAMUNE [Concomitant]
     Indication: HIV INFECTION
     Dosage: 400MG PER DAY
     Route: 048
     Dates: start: 19990101

REACTIONS (3)
  - ACUTE MYOCARDIAL INFARCTION [None]
  - BLOOD CREATINE PHOSPHOKINASE INCREASED [None]
  - TROPONIN INCREASED [None]
